FAERS Safety Report 4471987-6 (Version None)
Quarter: 2004Q4

REPORT INFORMATION
  Report Type: 
  Country: None (occurrence: None)
  Receive Date: 20041007
  Receipt Date: 20040924
  Transmission Date: 20050328
  Serious: Yes (Other)
  Sender: FDA-Public Use
  Company Number: 2004065045

PATIENT
  Age: 45 Year
  Sex: Male
  Weight: 106.4 kg

DRUGS (4)
  1. VIAGRA [Suspect]
     Indication: ERECTILE DYSFUNCTION
     Dosage: 25 MG, AS NECESSARY, ORAL
     Route: 048
     Dates: start: 20040401
  2. PERINDOPRIL (PERINDOPRIL) [Concomitant]
  3. WARFARIN (WARFARIN) [Concomitant]
  4. NEBIVOLOL (NEBIVOLOL) [Concomitant]

REACTIONS (1)
  - NASAL CONGESTION [None]
